FAERS Safety Report 24376540 (Version 1)
Quarter: 2024Q3

REPORT INFORMATION
  Report Type: Spontaneous
  Country: FR (occurrence: FR)
  Receive Date: 20240930
  Receipt Date: 20240930
  Transmission Date: 20241016
  Serious: Yes (Hospitalization)
  Sender: FRESENIUS KABI
  Company Number: None

PATIENT
  Age: 31 Year
  Sex: Female
  Weight: 41.5 kg

DRUGS (14)
  1. FLUCONAZOLE [Suspect]
     Active Substance: FLUCONAZOLE
     Indication: Antifungal treatment
     Route: 042
     Dates: start: 20240802, end: 20240807
  2. CIPROFLOXACIN [Suspect]
     Active Substance: CIPROFLOXACIN
     Indication: Lung disorder
     Dates: start: 20240804, end: 20240806
  3. PREGABALIN [Suspect]
     Active Substance: PREGABALIN
     Indication: Product used for unknown indication
     Dates: start: 20240720, end: 20240806
  4. SULFAMETHOXAZOLE AND TRIMETHOPRIM [Suspect]
     Active Substance: SULFAMETHOXAZOLE\TRIMETHOPRIM
     Indication: Lung disorder
     Route: 042
     Dates: start: 20240804, end: 20240806
  5. AVIBACTAM SODIUM\CEFTAZIDIME [Suspect]
     Active Substance: AVIBACTAM SODIUM\CEFTAZIDIME
     Indication: Lung disorder
     Route: 042
     Dates: start: 20240804, end: 20240806
  6. LANSOPRAZOLE [Concomitant]
     Active Substance: LANSOPRAZOLE
     Indication: Product used for unknown indication
  7. MORPHINE [Concomitant]
     Active Substance: MORPHINE
     Indication: Product used for unknown indication
  8. ACETAMINOPHEN [Concomitant]
     Active Substance: ACETAMINOPHEN
     Indication: Product used for unknown indication
  9. OXAZEPAM [Concomitant]
     Active Substance: OXAZEPAM
     Indication: Product used for unknown indication
  10. NEFOPAM HYDROCHLORIDE [Concomitant]
     Active Substance: NEFOPAM HYDROCHLORIDE
     Indication: Product used for unknown indication
  11. HEPARIN [Concomitant]
     Active Substance: HEPARIN SODIUM
     Indication: Product used for unknown indication
  12. VANCOMYCIN [Concomitant]
     Active Substance: VANCOMYCIN
     Indication: Septic shock
  13. NOREPINEPHRINE [Concomitant]
     Active Substance: NOREPINEPHRINE\NOREPINEPHRINE BITARTRATE
     Indication: Product used for unknown indication
  14. AMIODARONE [Concomitant]
     Active Substance: AMIODARONE
     Indication: Cardiac failure
     Dates: start: 20240719, end: 20240813

REACTIONS (1)
  - Agranulocytosis [Recovered/Resolved]

NARRATIVE: CASE EVENT DATE: 20240806
